FAERS Safety Report 17878861 (Version 2)
Quarter: 2020Q2

REPORT INFORMATION
  Report Type: Spontaneous
  Country: US (occurrence: US)
  Receive Date: 20200610
  Receipt Date: 20200612
  Transmission Date: 20200714
  Serious: No
  Sender: FDA-Public Use
  Company Number: US-009507513-2006USA003483

PATIENT
  Sex: Female

DRUGS (1)
  1. NEXPLANON [Suspect]
     Active Substance: ETONOGESTREL
     Indication: CONTRACEPTION
     Dosage: 1 DOSAGE FORM, 1 ROD 3 YEARS
     Route: 059
     Dates: start: 20200408

REACTIONS (3)
  - Joint injury [Not Recovered/Not Resolved]
  - Tendon injury [Not Recovered/Not Resolved]
  - Ankle fracture [Not Recovered/Not Resolved]
